FAERS Safety Report 8609122-2 (Version None)
Quarter: 2012Q3

REPORT INFORMATION
  Report Type: 
  Country: None (occurrence: None)
  Receive Date: 20120808
  Receipt Date: 20120723
  Transmission Date: 20120928
  Serious: Yes (Other)
  Sender: FDA-Public Use
  Company Number: CA-009029

PATIENT
  Age: 52 Year
  Sex: Male

DRUGS (1)
  1. FIRMAGON [Suspect]
     Indication: PROSTATE CANCER
     Dosage: 80 MG 1X/MONTH SUBCUTANEOUS
     Route: 058
     Dates: end: 20120626

REACTIONS (2)
  - ABDOMINAL PAIN [None]
  - GASTROINTESTINAL NEOPLASM [None]
